FAERS Safety Report 7710847-1 (Version None)
Quarter: 2011Q3

REPORT INFORMATION
  Report Type: 
  Country: None (occurrence: None)
  Receive Date: 20110825
  Receipt Date: 20110815
  Transmission Date: 20111222
  Serious: Yes (Death, Other)
  Sender: FDA-Public Use
  Company Number: DE-GENENTECH-289555

PATIENT

DRUGS (2)
  1. BENDAMUSTINE [Suspect]
     Indication: B-CELL LYMPHOMA
     Dosage: 120 MG/M2, UNK
     Route: 065
  2. MABTHERA [Suspect]
     Indication: B-CELL LYMPHOMA
     Dosage: 375 MG/M2, UNK
     Route: 065

REACTIONS (13)
  - NEUTROPENIA [None]
  - VERTIGO [None]
  - RENAL FAILURE [None]
  - INFECTION [None]
  - VOMITING [None]
  - ANAEMIA [None]
  - NEOPLASM MALIGNANT [None]
  - LEUKOPENIA [None]
  - NAUSEA [None]
  - DIARRHOEA [None]
  - PSYCHOTIC DISORDER [None]
  - THROMBOCYTOPENIA [None]
  - FATIGUE [None]
